FAERS Safety Report 24803616 (Version 1)
Quarter: 2025Q1

REPORT INFORMATION
  Report Type: Spontaneous
  Country: IT (occurrence: IT)
  Receive Date: 20250103
  Receipt Date: 20250103
  Transmission Date: 20250409
  Serious: Yes (Other)
  Sender: ABBVIE
  Company Number: None

PATIENT
  Age: 68 Year
  Sex: Female

DRUGS (2)
  1. HUMIRA [Suspect]
     Active Substance: ADALIMUMAB
     Indication: Peripheral spondyloarthritis
     Route: 058
     Dates: start: 201607, end: 202306
  2. YUFLYMA [Suspect]
     Active Substance: ADALIMUMAB-AATY
     Indication: Peripheral spondyloarthritis
     Route: 058
     Dates: start: 202307, end: 202401

REACTIONS (2)
  - Purpura [Unknown]
  - Cryoglobulinaemia [Not Recovered/Not Resolved]

NARRATIVE: CASE EVENT DATE: 20240101
